FAERS Safety Report 20360016 (Version 1)
Quarter: 2022Q1

REPORT INFORMATION
  Report Type: Report from Study
  Country: US (occurrence: US)
  Receive Date: 20220121
  Receipt Date: 20220121
  Transmission Date: 20220423
  Serious: Yes (Other)
  Sender: FDA-Public Use
  Company Number: US-JNJFOC-20220127167

PATIENT

DRUGS (2)
  1. DARZALEX [Suspect]
     Active Substance: DARATUMUMAB
     Indication: Plasma cell myeloma
     Route: 042
  2. LENALIDOMIDE [Concomitant]
     Active Substance: LENALIDOMIDE

REACTIONS (10)
  - Progressive multifocal leukoencephalopathy [Unknown]
  - Pneumocystis jirovecii pneumonia [Unknown]
  - Bronchopulmonary aspergillosis [Unknown]
  - Tuberculosis [Unknown]
  - Cytomegalovirus infection reactivation [Unknown]
  - Hepatitis B reactivation [Unknown]
  - Neutropenia [Unknown]
  - Hypogammaglobulinaemia [Unknown]
  - Lymphopenia [Unknown]
  - Herpes zoster [Unknown]
